FAERS Safety Report 5140884-5 (Version None)
Quarter: 2006Q4

REPORT INFORMATION
  Report Type: 
  Country: None (occurrence: None)
  Receive Date: 20060905
  Receipt Date: 20050713
  Transmission Date: 20070319
  Serious: Yes (Hospitalization)
  Sender: FDA-Public Use
  Company Number: 004924

PATIENT
  Age: 28 Year
  Sex: Female
  Weight: 65.8 kg

DRUGS (1)
  1. PLAN B [Suspect]
     Indication: CONTRACEPTION
     Dosage: 1.00 TABLET, Q12HR, ORAL
     Route: 048
     Dates: start: 20050201, end: 20050201

REACTIONS (3)
  - ABDOMINAL PAIN [None]
  - ECTOPIC PREGNANCY [None]
  - UTERINE HAEMORRHAGE [None]
